FAERS Safety Report 16421736 (Version 4)
Quarter: 2019Q3

REPORT INFORMATION
  Report Type: Spontaneous
  Country: JP (occurrence: JP)
  Receive Date: 20190612
  Receipt Date: 20190730
  Transmission Date: 20191004
  Serious: Yes (Hospitalization, Other)
  Sender: FDA-Public Use
  Company Number: JP-BAYER-2019-112254

PATIENT
  Age: 34 Year
  Sex: Female

DRUGS (16)
  1. MIRENA [Suspect]
     Active Substance: LEVONORGESTREL
     Indication: MENORRHAGIA
     Dosage: 20 MCG/24HR, CONT
     Route: 015
     Dates: start: 20170728
  2. DUROTEP [Concomitant]
     Active Substance: FENTANYL
     Dosage: EVERY 3DAYS
     Route: 003
     Dates: end: 201705
  3. MIRENA [Suspect]
     Active Substance: LEVONORGESTREL
     Indication: MENORRHAGIA
  4. ONETRAM [Concomitant]
     Active Substance: TRAMADOL HYDROCHLORIDE
     Dosage: UNK
     Dates: start: 20161125
  5. ROHYPNOL [Concomitant]
     Active Substance: FLUNITRAZEPAM
     Dosage: UNK
     Dates: start: 20161209
  6. TRAMCET [Concomitant]
     Active Substance: ACETAMINOPHEN\TRAMADOL
     Dosage: DAILY DOSE 8DF
     Route: 048
  7. NEUROTROPIN [RABBIT VACCINIA EXTRACT] [Concomitant]
     Active Substance: ORYCTOLAGUS CUNICULUS SKIN
     Dosage: DAILY DOSE 2DF
     Route: 048
  8. VEGETAMIN B [Concomitant]
     Active Substance: CHLORPROMAZINE HYDROCHLORIDE\PHENOBARBITAL\PROMETHAZINE
     Dosage: 1 DF, QD
     Route: 048
  9. NEUROTROPIN [RABBIT VACCINIA EXTRACT] [Concomitant]
     Active Substance: ORYCTOLAGUS CUNICULUS SKIN
     Dosage: INJECTION
  10. CODEINE PHOSPHATE [CODEINE PHOSPHATE HEMIHYDRATE] [Concomitant]
     Dosage: UNK
     Dates: start: 20161209
  11. MIRENA [Suspect]
     Active Substance: LEVONORGESTREL
     Indication: MENORRHAGIA
     Dosage: 20 MCG/24HR, CONT
     Route: 015
     Dates: start: 20160812, end: 20170728
  12. CYMBALTA [Concomitant]
     Active Substance: DULOXETINE HYDROCHLORIDE
     Dosage: 40 MG, QD
     Route: 048
     Dates: end: 201611
  13. REFLEX [MIRTAZAPINE] [Concomitant]
     Dosage: 15 MG, QD
     Route: 048
  14. CYMBALTA [Concomitant]
     Active Substance: DULOXETINE HYDROCHLORIDE
     Dosage: 40 MG, QD
     Route: 048
     Dates: start: 20170107
  15. SEROQUEL [Concomitant]
     Active Substance: QUETIAPINE FUMARATE
     Dosage: 400 MG, QD
     Route: 048
  16. LYRICA [Concomitant]
     Active Substance: PREGABALIN
     Dosage: DAILY DOSE 6DF
     Route: 048
     Dates: end: 201611

REACTIONS (13)
  - Abdominal pain [None]
  - Epilepsy [None]
  - Abdominal distension [None]
  - Pyelocaliectasis [Not Recovered/Not Resolved]
  - Pyrexia [None]
  - Hyperthermia [None]
  - Device dislocation [None]
  - Pyelonephritis [None]
  - Foreign body in urogenital tract [None]
  - Device expulsion [None]
  - Cough [None]
  - Metrorrhagia [None]
  - Ureteric injury [Not Recovered/Not Resolved]

NARRATIVE: CASE EVENT DATE: 20170629
